FAERS Safety Report 10380458 (Version 1)
Quarter: 2014Q3

REPORT INFORMATION
  Report Type: Spontaneous
  Country: US (occurrence: US)
  Receive Date: 20140813
  Receipt Date: 20140813
  Transmission Date: 20150326
  Serious: Yes (Disabling)
  Sender: FDA-Public Use
  Company Number: US-SA-2014SA107271

PATIENT
  Age: 41 Year
  Sex: Male

DRUGS (2)
  1. CORTICOSTEROID NOS [Concomitant]
     Active Substance: CORTICOSTEROID NOS
  2. FABRAZYME [Suspect]
     Active Substance: AGALSIDASE BETA
     Indication: FABRY^S DISEASE
     Route: 042

REACTIONS (1)
  - Hearing impaired [Not Recovered/Not Resolved]

NARRATIVE: CASE EVENT DATE: 20140727
